FAERS Safety Report 20009708 (Version 5)
Quarter: 2022Q3

REPORT INFORMATION
  Report Type: Spontaneous
  Country: US (occurrence: US)
  Receive Date: 20211029
  Receipt Date: 20220927
  Transmission Date: 20221027
  Serious: No
  Sender: FDA-Public Use
  Company Number: US-SA-SAC20211027001579

PATIENT
  Age: 67 Year
  Sex: Female

DRUGS (2)
  1. AUBAGIO [Suspect]
     Active Substance: TERIFLUNOMIDE
     Indication: Multiple sclerosis
     Dosage: 14 MG, QD
     Route: 048
     Dates: start: 20210902
  2. AUBAGIO [Suspect]
     Active Substance: TERIFLUNOMIDE
     Dosage: 7 MG
     Route: 048

REACTIONS (11)
  - Dizziness [Recovered/Resolved]
  - Hypotension [Recovered/Resolved]
  - Madarosis [Unknown]
  - Vertigo [Unknown]
  - COVID-19 [Unknown]
  - Wheezing [Unknown]
  - Sinusitis [Unknown]
  - Weight increased [Unknown]
  - Pain in extremity [Unknown]
  - Alopecia [Unknown]
  - Paraesthesia [Unknown]
